FAERS Safety Report 11843143 (Version 1)
Quarter: 2015Q4

REPORT INFORMATION
  Report Type: Report from Study
  Country: US (occurrence: US)
  Receive Date: 20151216
  Receipt Date: 20151216
  Transmission Date: 20160305
  Serious: Yes (Hospitalization, Other)
  Sender: FDA-Public Use
  Company Number: US-AMGEN-USASL2015131638

PATIENT
  Age: 60 Year
  Sex: Male

DRUGS (1)
  1. ENBREL [Suspect]
     Active Substance: ETANERCEPT
     Indication: PSORIATIC ARTHROPATHY
     Dosage: 50 MG, QWK
     Route: 065
     Dates: start: 2015

REACTIONS (9)
  - Ligament rupture [Unknown]
  - Arthropathy [Unknown]
  - Meniscus operation [Unknown]
  - Ligament sprain [Unknown]
  - Drug dose omission [Unknown]
  - Arthralgia [Unknown]
  - Joint swelling [Unknown]
  - Arthritis bacterial [Unknown]
  - Abasia [Unknown]

NARRATIVE: CASE EVENT DATE: 2015
